FAERS Safety Report 13063809 (Version 1)
Quarter: 2016Q4

REPORT INFORMATION
  Report Type: Spontaneous
  Country: US (occurrence: US)
  Receive Date: 20161227
  Receipt Date: 20161227
  Transmission Date: 20170207
  Serious: No
  Sender: FDA-Public Use
  Company Number: US-PFIZER INC-2016585391

PATIENT
  Age: 69 Year
  Sex: Female

DRUGS (1)
  1. PREMARIN [Suspect]
     Active Substance: ESTROGENS, CONJUGATED
     Indication: DYSPAREUNIA
     Dosage: 1CC, (3X THE FIRST WEEK, 2 X THE SECOND WEEK, AND ONCE PER WEEK )

REACTIONS (2)
  - Drug ineffective [Unknown]
  - Product use issue [Unknown]
